FAERS Safety Report 25768849 (Version 1)
Quarter: 2025Q3

REPORT INFORMATION
  Report Type: Spontaneous
  Country: EU (occurrence: EU)
  Receive Date: 20250905
  Receipt Date: 20250905
  Transmission Date: 20251021
  Serious: Yes (Other)
  Sender: NOVARTIS
  Company Number: None

PATIENT
  Age: 76 Year
  Sex: Female

DRUGS (2)
  1. KISQALI [Suspect]
     Active Substance: RIBOCICLIB SUCCINATE
     Indication: Breast cancer
     Route: 048
     Dates: start: 20210326
  2. FASLODEX [Concomitant]
     Active Substance: FULVESTRANT
     Indication: Product used for unknown indication
     Route: 065

REACTIONS (12)
  - Stomatitis [Recovering/Resolving]
  - Glossitis [Recovering/Resolving]
  - Laryngitis [Recovering/Resolving]
  - Mouth injury [Recovering/Resolving]
  - Glossodynia [Recovering/Resolving]
  - Pruritus [Recovering/Resolving]
  - Oral discomfort [Recovering/Resolving]
  - Dysphagia [Recovering/Resolving]
  - Ageusia [Recovering/Resolving]
  - Decreased appetite [Recovering/Resolving]
  - Tongue injury [Recovering/Resolving]
  - Oral pain [Recovering/Resolving]

NARRATIVE: CASE EVENT DATE: 20210326
